FAERS Safety Report 11795101 (Version 5)
Quarter: 2017Q2

REPORT INFORMATION
  Report Type: Report from Study
  Country: US (occurrence: US)
  Receive Date: 20151202
  Receipt Date: 20170508
  Transmission Date: 20170829
  Serious: Yes (Hospitalization, Other)
  Sender: FDA-Public Use
  Company Number: US-JNJFOC-20151022467

PATIENT
  Age: 71 Year
  Sex: Male
  Weight: 115 kg

DRUGS (14)
  1. IMBRUVICA [Suspect]
     Active Substance: IBRUTINIB
     Indication: CHRONIC LYMPHOCYTIC LEUKAEMIA
     Route: 048
     Dates: start: 201411
  2. TYLENOL [Concomitant]
     Active Substance: ACETAMINOPHEN
  3. TAMSULOSIN [Concomitant]
     Active Substance: TAMSULOSIN
     Dosage: 1 TAB
  4. IMBRUVICA [Suspect]
     Active Substance: IBRUTINIB
     Indication: CHRONIC LYMPHOCYTIC LEUKAEMIA
     Route: 048
     Dates: start: 20141016, end: 20151008
  5. IMBRUVICA [Suspect]
     Active Substance: IBRUTINIB
     Indication: CHRONIC LYMPHOCYTIC LEUKAEMIA
     Route: 048
     Dates: start: 20140707
  6. ASPIRIN. [Concomitant]
     Active Substance: ASPIRIN
     Dates: end: 20150929
  7. IMBRUVICA [Suspect]
     Active Substance: IBRUTINIB
     Indication: CHRONIC LYMPHOCYTIC LEUKAEMIA
     Route: 048
     Dates: start: 20151108
  8. ATORVASTATIN [Concomitant]
     Active Substance: ATORVASTATIN
  9. IMBRUVICA [Suspect]
     Active Substance: IBRUTINIB
     Indication: CHRONIC LYMPHOCYTIC LEUKAEMIA
     Route: 048
     Dates: start: 20140709, end: 20141015
  10. AMIODARONE [Concomitant]
     Active Substance: AMIODARONE
     Indication: ATRIAL FIBRILLATION
     Dates: start: 20141210, end: 20150629
  11. AMIODARONE [Concomitant]
     Active Substance: AMIODARONE
     Indication: ATRIAL FIBRILLATION
     Dosage: TAPERING DOSE
     Dates: start: 20150630, end: 2015
  12. HYDROCHLOROTHIAZIDE. [Concomitant]
     Active Substance: HYDROCHLOROTHIAZIDE
     Dates: end: 2015
  13. AMIODARONE [Concomitant]
     Active Substance: AMIODARONE
     Indication: ATRIAL FIBRILLATION
     Dates: start: 2015
  14. ESOMEPRAZOLE [Concomitant]
     Active Substance: ESOMEPRAZOLE

REACTIONS (17)
  - Muscle spasms [Unknown]
  - Headache [Not Recovered/Not Resolved]
  - Cervical spinal stenosis [Recovering/Resolving]
  - Osteoarthritis [Unknown]
  - Post procedural haemorrhage [Recovering/Resolving]
  - Dysphagia [Recovered/Resolved]
  - Insomnia [Unknown]
  - Productive cough [Recovered/Resolved]
  - Stomatitis [Recovered/Resolved]
  - Rash [Not Recovered/Not Resolved]
  - Incorrect dose administered [Recovered/Resolved]
  - Dry mouth [Not Recovered/Not Resolved]
  - Platelet count decreased [Unknown]
  - Increased tendency to bruise [Not Recovered/Not Resolved]
  - Off label use [Recovering/Resolving]
  - Ecchymosis [Recovered/Resolved]
  - Atrial fibrillation [Unknown]

NARRATIVE: CASE EVENT DATE: 20140707
